FAERS Safety Report 7543447-7 (Version None)
Quarter: 2011Q2

REPORT INFORMATION
  Report Type: 
  Country: None (occurrence: None)
  Receive Date: 20110613
  Receipt Date: 20110608
  Transmission Date: 20111010
  Serious: Yes (Hospitalization)
  Sender: FDA-Public Use
  Company Number: ES-PFIZER INC-2007097588

PATIENT
  Age: 65 Year
  Sex: Male

DRUGS (9)
  1. PIPERACILLIN AND TAZOBACTAM [Suspect]
     Indication: SEPTIC SHOCK
     Dosage: 8/1 GRAMS DAILY
     Route: 042
     Dates: start: 20070915, end: 20070925
  2. ATROVENT [Concomitant]
     Indication: CHRONIC OBSTRUCTIVE PULMONARY DISEASE
     Dosage: DAILY
     Route: 055
     Dates: start: 20070915
  3. MIDAZOLAM HCL [Concomitant]
     Indication: ANALGESIC THERAPY
     Route: 042
     Dates: start: 20070918, end: 20070920
  4. FITOMENADION [Concomitant]
     Indication: HAEMORRHAGE
     Route: 042
     Dates: start: 20070915, end: 20070918
  5. PRILOSEC [Concomitant]
     Dosage: UNK
     Route: 042
     Dates: start: 20070915, end: 20070920
  6. ALBUTEROL [Concomitant]
     Indication: CHRONIC OBSTRUCTIVE PULMONARY DISEASE
     Dosage: DAILY
     Route: 055
     Dates: start: 20070915
  7. ZYVOX [Suspect]
     Indication: SEPTIC SHOCK
     Dosage: 600 MG, 2X/DAY
     Route: 042
     Dates: start: 20070912, end: 20070920
  8. EPOPROSTENOL SODIUM [Concomitant]
     Indication: MULTI-ORGAN FAILURE
     Route: 042
     Dates: start: 20070915, end: 20070916
  9. ENOXAPARIN SODIUM [Concomitant]
     Indication: PROPHYLAXIS
     Dosage: DAILY
     Route: 058
     Dates: start: 20070915, end: 20070922

REACTIONS (2)
  - HAEMOPTYSIS [None]
  - THROMBOCYTOPENIA [None]
